FAERS Safety Report 9108729 (Version 1)
Quarter: 2013Q1

REPORT INFORMATION
  Report Type: Spontaneous
  Country: CN (occurrence: CN)
  Receive Date: 20130222
  Receipt Date: 20130222
  Transmission Date: 20140127
  Serious: Yes (Other)
  Sender: FDA-Public Use
  Company Number: CN-PFIZER INC-2013061987

PATIENT
  Sex: Male

DRUGS (1)
  1. VIAGRA [Suspect]
     Dosage: ONE TABLET
     Route: 048
     Dates: start: 20130215

REACTIONS (5)
  - Cardiac discomfort [Unknown]
  - Abdominal pain [Unknown]
  - Dizziness [Unknown]
  - Headache [Unknown]
  - Drug ineffective [Unknown]
